FAERS Safety Report 9464853 (Version 1)
Quarter: 2013Q3

REPORT INFORMATION
  Report Type: Spontaneous
  Country: AU (occurrence: AU)
  Receive Date: 20130819
  Receipt Date: 20130819
  Transmission Date: 20140515
  Serious: Yes (Hospitalization, Other)
  Sender: FDA-Public Use
  Company Number: PHHY2013AU088435

PATIENT
  Age: 78 Year
  Sex: Male

DRUGS (10)
  1. ALENDRONATE [Suspect]
     Dosage: 70 MG, QW
  2. CALCITRIOL [Suspect]
     Dosage: 2.25 UG, QD
     Route: 048
  3. CALCITRIOL [Suspect]
     Dosage: 1.5 UG, QD
     Route: 048
  4. DOCETAXEL [Concomitant]
  5. CABAZITAXEL [Concomitant]
     Indication: CHEMOTHERAPY
  6. CHOLECALCIFEROL [Concomitant]
     Dosage: 1000 IU, QD
  7. CALTRATE [Concomitant]
     Dosage: 1200 MG, QD
  8. RADIOTHERAPY [Concomitant]
  9. DENOSUMAB [Concomitant]
  10. CALCIUM CARBONATE [Concomitant]
     Dosage: 5400 MG, QD IN DIVIDED DOSES

REACTIONS (12)
  - Metastases to bone [Unknown]
  - Disease progression [Unknown]
  - Febrile neutropenia [Unknown]
  - Hypophosphataemia [Unknown]
  - Prostatic specific antigen increased [Unknown]
  - Hypocalcaemia [Recovered/Resolved]
  - Bone pain [Unknown]
  - Muscle twitching [Unknown]
  - Chvostek^s sign [Unknown]
  - Trousseau^s sign [Unknown]
  - Electrocardiogram QT prolonged [Unknown]
  - Drug ineffective [Recovered/Resolved]
